FAERS Safety Report 8338694-0 (Version None)
Quarter: 2012Q2

REPORT INFORMATION
  Report Type: 
  Country: None (occurrence: None)
  Receive Date: 20120504
  Receipt Date: 20120429
  Transmission Date: 20120825
  Serious: Yes (Other)
  Sender: FDA-Public Use
  Company Number: US-ELI_LILLY_AND_COMPANY-US201204010101

PATIENT
  Sex: Female
  Weight: 90.703 kg

DRUGS (8)
  1. BYETTA [Suspect]
     Dosage: 10 UG, BID
     Route: 058
  2. BYETTA [Suspect]
     Dosage: 10 UG, BID
     Route: 058
  3. BYETTA [Suspect]
     Dosage: 10 UG, BID
     Route: 058
  4. BYETTA [Suspect]
     Dosage: 5 UG, BID
     Route: 058
  5. METFORMIN HCL [Concomitant]
     Indication: TYPE 2 DIABETES MELLITUS
     Dosage: UNK
     Route: 048
  6. DIOVAN [Concomitant]
     Indication: PROPHYLAXIS
     Dosage: UNK
     Route: 048
     Dates: end: 20120229
  7. BYETTA [Suspect]
     Indication: TYPE 2 DIABETES MELLITUS
     Dosage: 5 UG, BID
     Route: 058
  8. BYETTA [Suspect]
     Dosage: 5 UG, BID
     Route: 058

REACTIONS (4)
  - HEPATIC ENZYME INCREASED [None]
  - EYE DISCHARGE [None]
  - EYE HAEMORRHAGE [None]
  - VOMITING [None]
